FAERS Safety Report 7538199-0 (Version None)
Quarter: 2011Q2

REPORT INFORMATION
  Report Type: 
  Country: None (occurrence: None)
  Receive Date: 20110609
  Receipt Date: 20110530
  Transmission Date: 20111010
  Serious: Yes (Hospitalization)
  Sender: FDA-Public Use
  Company Number: JP-CELGENEUS-087-21880-11023106

PATIENT
  Sex: Male

DRUGS (75)
  1. DEXAMETHASONE [Suspect]
     Dosage: 20 MILLIGRAM
     Route: 048
     Dates: start: 20110302, end: 20110302
  2. KYTRIL [Concomitant]
     Indication: PROPHYLAXIS
     Dosage: 3 MILLIGRAM
     Route: 041
     Dates: start: 20101221, end: 20101228
  3. ALLOPURINOL [Concomitant]
     Dosage: 100 MILLIGRAM
     Route: 048
     Dates: start: 20101221, end: 20110110
  4. FUNGIZONE [Concomitant]
     Indication: PROPHYLAXIS
     Dosage: 16 MILLILITER
     Route: 048
     Dates: start: 20101216, end: 20110110
  5. FUNGIZONE [Concomitant]
     Dosage: 16 MILLILITER
     Route: 048
     Dates: start: 20110111, end: 20110307
  6. PROCHLORPERAZINE [Concomitant]
     Indication: PROPHYLAXIS
     Dosage: 15 MILLIGRAM
     Route: 048
     Dates: start: 20101216, end: 20110110
  7. PURSENNID [Concomitant]
     Dosage: 24 MILLIGRAM
     Route: 048
     Dates: start: 20110111, end: 20110307
  8. DESYREL [Concomitant]
     Dosage: 50 MILLIGRAM
     Route: 048
     Dates: start: 20101222, end: 20110307
  9. SEROQUEL [Concomitant]
     Dosage: 50 MILLIGRAM
     Route: 048
     Dates: start: 20101225, end: 20101225
  10. LYRICA [Concomitant]
     Dosage: 75 MILLIGRAM
     Route: 048
     Dates: start: 20101227, end: 20110109
  11. REVLIMID [Suspect]
     Dosage: 25 MILLIGRAM
     Route: 048
     Dates: start: 20110222, end: 20110307
  12. FUNGUARD [Concomitant]
     Indication: PROPHYLAXIS
     Dosage: 150 MILLIGRAM
     Route: 041
     Dates: start: 20101224, end: 20110104
  13. DEXAMETHASONE [Concomitant]
     Indication: REFRACTORY CANCER
     Dosage: 132 MILLIGRAM
     Route: 041
     Dates: start: 20110201, end: 20110211
  14. DEXAMETHASONE [Concomitant]
     Dosage: 132 MILLIGRAM
     Route: 041
     Dates: start: 20110222, end: 20110304
  15. MUCODYNE [Concomitant]
     Dosage: 132 MILLIGRAM
     Route: 041
     Dates: start: 20110222, end: 20110304
  16. OMEPRAZOLE [Concomitant]
     Dosage: 132 MILLIGRAM
     Route: 041
     Dates: start: 20110201, end: 20110211
  17. SULFAMETHOXAZOLE [Concomitant]
     Dosage: 132 MILLIGRAM
     Route: 041
     Dates: start: 20110201, end: 20110211
  18. SULFAMETHOXAZOLE [Concomitant]
     Dosage: 132 MILLIGRAM
     Route: 041
     Dates: start: 20110222, end: 20110304
  19. DEXAMETHASONE [Suspect]
     Indication: MULTIPLE MYELOMA
     Dosage: 20 MILLIGRAM
     Route: 048
     Dates: start: 20110223, end: 20110223
  20. ACYCRIL [Concomitant]
     Indication: PROPHYLAXIS
     Dosage: 500 MILLIGRAM
     Route: 041
     Dates: start: 20101224, end: 20110110
  21. PURSENNID [Concomitant]
     Dosage: 24 MILLIGRAM
     Route: 048
     Dates: start: 20101216, end: 20110110
  22. TETRAMIDE [Concomitant]
     Dosage: 10 MILLIGRAM
     Route: 048
     Dates: start: 20101222, end: 20101222
  23. KENEI G [Concomitant]
     Dosage: 60 MILLILITER
     Route: 065
     Dates: start: 20101230, end: 20110103
  24. KENEI G [Concomitant]
     Dosage: 60 MILLILITER
     Route: 065
     Dates: start: 20110118, end: 20110118
  25. OMEPRAZOLE [Concomitant]
     Dosage: 132 MILLIGRAM
     Route: 041
     Dates: start: 20110222, end: 20110304
  26. ZOVIRAX [Concomitant]
     Dosage: 132 MILLIGRAM
     Route: 041
     Dates: start: 20110222, end: 20110304
  27. REVLIMID [Suspect]
     Dosage: 25 MILLIGRAM
     Route: 048
     Dates: start: 20110111, end: 20110124
  28. DEXART [Concomitant]
     Indication: MULTIPLE MYELOMA
     Dosage: 16.5 MILLIGRAM
     Route: 041
     Dates: start: 20101221, end: 20101221
  29. VELCADE [Concomitant]
     Indication: REFRACTORY CANCER
     Dosage: 1.3 MILLIGRAM/SQ. METER
     Route: 041
     Dates: start: 20101228, end: 20101228
  30. GANCICLOVIR [Concomitant]
     Indication: PROPHYLAXIS
     Dosage: 125 MILLIGRAM
     Route: 041
     Dates: start: 20101224, end: 20101224
  31. ALLOPURINOL [Concomitant]
     Indication: PROPHYLAXIS
     Dosage: 200 MILLIGRAM
     Route: 048
     Dates: start: 20101216, end: 20101220
  32. OXYCONTIN [Concomitant]
     Dosage: 10 MILLIGRAM
     Route: 048
     Dates: start: 20101216, end: 20110110
  33. PROCHLORPERAZINE [Concomitant]
     Dosage: 15 MILLIGRAM
     Route: 048
     Dates: start: 20110111, end: 20110307
  34. DEXAMETHASONE [Concomitant]
     Indication: MULTIPLE MYELOMA
     Dosage: 132 MILLIGRAM
     Route: 041
     Dates: start: 20110111, end: 20110121
  35. MAGNESIUM OXIDE [Concomitant]
     Dosage: 132 MILLIGRAM
     Route: 041
     Dates: start: 20110222, end: 20110304
  36. MUCOSOLVAN [Concomitant]
     Dosage: 132 MILLIGRAM
     Route: 041
     Dates: start: 20110222, end: 20110304
  37. OMEPRAZOLE [Concomitant]
     Indication: PROPHYLAXIS
     Dosage: 20 MILLIGRAM
     Route: 048
     Dates: start: 20110111, end: 20110307
  38. ZOVIRAX [Concomitant]
     Indication: PROPHYLAXIS
     Dosage: 200 MILLIGRAM
     Route: 048
     Dates: start: 20110111, end: 20110307
  39. VELCADE [Concomitant]
     Dosage: 7.78 MILLIGRAM/SQ. METER
     Route: 041
     Dates: start: 20110222, end: 20110304
  40. KYTRIL [Concomitant]
     Dosage: 6 MILLIGRAM
     Route: 041
     Dates: start: 20110111, end: 20110304
  41. KAYTWO N [Concomitant]
     Dosage: 10 MILLIGRAM
     Route: 041
     Dates: start: 20101224, end: 20101229
  42. ACETAMINOPHEN [Concomitant]
     Dosage: 400 MILLIGRAM
     Route: 048
     Dates: start: 20101223, end: 20101224
  43. LAXOBERON [Concomitant]
     Dosage: 15 DROPS
     Route: 048
     Dates: start: 20101226, end: 20110105
  44. SULFAMETHOXAZOLE [Concomitant]
     Indication: PROPHYLAXIS
     Dosage: 1 GRAM
     Route: 048
     Dates: start: 20110111, end: 20110307
  45. ISODINE GARGLE [Concomitant]
     Indication: PROPHYLAXIS
     Dosage: Q.I
     Route: 048
     Dates: start: 20110111, end: 20110307
  46. REVLIMID [Suspect]
     Dosage: 10 MILLIGRAM
     Route: 048
     Dates: start: 20101229, end: 20110104
  47. DEXAMETHASONE [Suspect]
     Indication: REFRACTORY CANCER
     Dosage: 20 MILLIGRAM
     Route: 048
     Dates: start: 20110226, end: 20110226
  48. VELCADE [Concomitant]
     Dosage: 7.78 MILLIGRAM/SQ. METER
     Route: 041
     Dates: start: 20110201, end: 20110211
  49. OXINORM [Concomitant]
     Dosage: 5 MILLIGRAM
     Route: 048
     Dates: start: 20101216, end: 20101229
  50. OXYCONTIN [Concomitant]
     Dosage: 10 MILLIGRAM
     Route: 048
     Dates: start: 20110111, end: 20110307
  51. WINTERMIN [Concomitant]
     Dosage: 10 MILLIGRAM
     Route: 048
     Dates: start: 20101219, end: 20101225
  52. ASPIRIN [Concomitant]
     Indication: PROPHYLAXIS
     Dosage: 100 MILLIGRAM
     Route: 048
     Dates: start: 20101220, end: 20110110
  53. MUCODYNE [Concomitant]
     Indication: PROPHYLAXIS
     Dosage: 1500 MILLIGRAM
     Route: 048
     Dates: start: 20110111, end: 20110307
  54. MUCOSOLVAN [Concomitant]
     Indication: PROPHYLAXIS
     Dosage: 45 MILLIGRAM
     Route: 048
     Dates: start: 20110111, end: 20110307
  55. ISODINE GARGLE [Concomitant]
     Dosage: 132 MILLIGRAM
     Route: 041
     Dates: start: 20110201, end: 20110211
  56. ISODINE GARGLE [Concomitant]
     Dosage: 132 MILLIGRAM
     Route: 041
     Dates: start: 20110222, end: 20110304
  57. DEXART [Concomitant]
     Indication: REFRACTORY CANCER
     Dosage: 16.5 MILLIGRAM
     Route: 041
     Dates: start: 20101228, end: 20101228
  58. VELCADE [Concomitant]
     Indication: MULTIPLE MYELOMA
     Dosage: 1.3 MILLIGRAM/SQ. METER
     Route: 041
     Dates: start: 20101221, end: 20101221
  59. VELCADE [Concomitant]
     Dosage: 7.78 MILLIGRAM/SQ. METER
     Route: 041
     Dates: start: 20110111, end: 20110121
  60. LASIX [Concomitant]
     Indication: CARDIAC FAILURE
     Dosage: 120 MILLIGRAM
     Route: 041
     Dates: start: 20101218, end: 20101229
  61. ZOSYN [Concomitant]
     Indication: PROPHYLAXIS
     Dosage: 2.25 GRAM
     Route: 041
     Dates: start: 20101224, end: 20101229
  62. IMMUNE GLOBULIN NOS [Concomitant]
     Indication: PROPHYLAXIS
     Dosage: ADEQUATE DOSE
     Route: 062
     Dates: start: 20101216, end: 20110110
  63. MUCOSOLVAN [Concomitant]
     Dosage: 132 MILLIGRAM
     Route: 041
     Dates: start: 20110201, end: 20110211
  64. REVLIMID [Suspect]
     Indication: MULTIPLE MYELOMA
     Dosage: 25 MILLIGRAM
     Route: 048
     Dates: start: 20101221, end: 20101221
  65. REVLIMID [Suspect]
     Indication: REFRACTORY CANCER
     Dosage: 5 MILLIGRAM
     Route: 048
     Dates: start: 20101222, end: 20101228
  66. DEXAMETHASONE [Suspect]
     Dosage: 20 MILLIGRAM
     Route: 048
     Dates: start: 20110305, end: 20110305
  67. ROCEPHIN [Concomitant]
     Indication: PROPHYLAXIS
     Dosage: 1 GRAM
     Route: 041
     Dates: start: 20101223, end: 20101224
  68. JU-KAMA [Concomitant]
     Indication: PROPHYLAXIS
     Dosage: 2 GRAM
     Route: 048
     Dates: start: 20101216, end: 20110110
  69. IMMUNE GLOBULIN NOS [Concomitant]
     Dosage: QI
     Route: 062
     Dates: start: 20110111, end: 20110307
  70. ZYPREXA [Concomitant]
     Dosage: 5 MILLIGRAM
     Route: 048
     Dates: start: 20101225, end: 20101225
  71. LECICARBON [Concomitant]
     Dosage: 1
     Route: 065
     Dates: start: 20101226, end: 20110307
  72. MAGNESIUM OXIDE [Concomitant]
     Dosage: 2.01 GRAM
     Route: 048
     Dates: start: 20110111, end: 20110307
  73. MAGNESIUM OXIDE [Concomitant]
     Dosage: 132 MILLIGRAM
     Route: 041
     Dates: start: 20110201, end: 20110211
  74. MUCODYNE [Concomitant]
     Dosage: 132 MILLIGRAM
     Route: 041
     Dates: start: 20110201, end: 20110211
  75. ZOVIRAX [Concomitant]
     Dosage: 132 MILLIGRAM
     Route: 041
     Dates: start: 20110201, end: 20110211

REACTIONS (3)
  - LEUKOENCEPHALOPATHY [None]
  - LIVER FUNCTION TEST ABNORMAL [None]
  - GASTRITIS [None]
